FAERS Safety Report 16867986 (Version 4)
Quarter: 2022Q1

REPORT INFORMATION
  Report Type: Report from Study
  Country: JP (occurrence: JP)
  Receive Date: 20190930
  Receipt Date: 20220321
  Transmission Date: 20220423
  Serious: Yes (Death, Other)
  Sender: FDA-Public Use
  Company Number: JP-TAKEDA-2019TJP022429

PATIENT
  Age: 61 Year
  Sex: Male
  Weight: 41 kg

DRUGS (1)
  1. LEUPLIN [Suspect]
     Active Substance: LEUPROLIDE ACETATE
     Indication: Bulbospinal muscular atrophy congenital
     Dosage: 11.25 MILLIGRAM, Q3MONTHS
     Route: 058
     Dates: start: 20171218

REACTIONS (3)
  - Brugada syndrome [Fatal]
  - Bulbospinal muscular atrophy congenital [Fatal]
  - Decreased appetite [Unknown]

NARRATIVE: CASE EVENT DATE: 20190601
